FAERS Safety Report 8450194-6 (Version None)
Quarter: 2012Q2

REPORT INFORMATION
  Report Type: 
  Country: None (occurrence: None)
  Receive Date: 20120620
  Receipt Date: 20120612
  Transmission Date: 20120825
  Serious: Yes (Hospitalization)
  Sender: FDA-Public Use
  Company Number: US-BAYER-2012-003033

PATIENT
  Age: 23 Year
  Sex: Female
  Weight: 108.84 kg

DRUGS (5)
  1. YAZ [Suspect]
     Indication: CONTRACEPTION
     Dosage: UNK
     Dates: start: 20081001, end: 20091001
  2. MULTI-VITAMIN [Concomitant]
     Indication: MALAISE
     Dosage: UNK
     Dates: start: 20000101
  3. IBUPROFEN [Concomitant]
     Indication: PAIN
     Dosage: UNK
     Dates: start: 20000101
  4. METFORMIN HCL [Concomitant]
     Indication: GLUCOSE TOLERANCE IMPAIRED
     Dosage: UNK
     Dates: start: 20060101
  5. CLARITIN-D [Concomitant]
     Indication: MULTIPLE ALLERGIES
     Dosage: UNK
     Dates: start: 20000101

REACTIONS (7)
  - EMOTIONAL DISORDER [None]
  - CHOLELITHIASIS [None]
  - CHOLECYSTITIS [None]
  - PAIN [None]
  - PANCREATITIS [None]
  - INJURY [None]
  - FEAR [None]
